FAERS Safety Report 12134380 (Version 1)
Quarter: 2016Q1

REPORT INFORMATION
  Report Type: Spontaneous
  Country: US (occurrence: US)
  Receive Date: 20160301
  Receipt Date: 20160301
  Transmission Date: 20160526
  Serious: Yes (Hospitalization)
  Sender: FDA-Public Use
  Company Number: US-JAZZ-2016-US-003758

PATIENT
  Age: 29 Year
  Sex: Male

DRUGS (1)
  1. XYREM [Suspect]
     Active Substance: SODIUM OXYBATE
     Indication: PRODUCT USED FOR UNKNOWN INDICATION
     Route: 048

REACTIONS (16)
  - Blood creatinine increased [Recovered/Resolved]
  - Electrolyte imbalance [Recovered/Resolved]
  - Chromaturia [Recovered/Resolved]
  - Hypertension [Recovered/Resolved]
  - Anion gap increased [Recovered/Resolved]
  - Anuria [Recovered/Resolved]
  - Dysarthria [Recovered/Resolved]
  - Tachycardia [Recovered/Resolved]
  - Drug abuse [Unknown]
  - Stomatitis [Recovered/Resolved]
  - Abdominal pain [Recovered/Resolved]
  - Acidosis [Recovered/Resolved]
  - Pain [Recovered/Resolved]
  - Oliguria [Recovered/Resolved]
  - Rhabdomyolysis [Recovered/Resolved]
  - Coma [Recovered/Resolved]
